FAERS Safety Report 7336446-1 (Version None)
Quarter: 2011Q1

REPORT INFORMATION
  Report Type: 
  Country: None (occurrence: None)
  Receive Date: 20110307
  Receipt Date: 20110214
  Transmission Date: 20110831
  Serious: No
  Sender: FDA-Public Use
  Company Number: US-B.I. PHARMACEUTICALS,INC./RIDGEFIELD-2011-BP-05616BP

PATIENT
  Sex: Female

DRUGS (3)
  1. PAROXETINE [Concomitant]
     Indication: DEPRESSION
  2. TIKOSYN [Concomitant]
     Indication: ATRIAL FIBRILLATION
  3. PRADAXA [Suspect]
     Indication: ATRIAL FIBRILLATION
     Dosage: 150 MG
     Route: 048
     Dates: start: 20110207

REACTIONS (5)
  - FOREIGN BODY [None]
  - GASTROOESOPHAGEAL REFLUX DISEASE [None]
  - BURNING SENSATION [None]
  - DYSPHAGIA [None]
  - ANAL PRURITUS [None]
